APPROVED DRUG PRODUCT: DESOXIMETASONE
Active Ingredient: DESOXIMETASONE
Strength: 0.05%
Dosage Form/Route: GEL;TOPICAL
Application: A077552 | Product #001 | TE Code: AB
Applicant: PADAGIS US LLC
Approved: Jan 9, 2006 | RLD: No | RS: No | Type: RX